FAERS Safety Report 4379470-3 (Version None)
Quarter: 2004Q2

REPORT INFORMATION
  Report Type: 
  Country: None (occurrence: None)
  Receive Date: 20040617
  Receipt Date: 20040610
  Transmission Date: 20050107
  Serious: Yes (Hospitalization)
  Sender: FDA-Public Use
  Company Number: US-BRISTOL-MYERS SQUIBB COMPANY-12611224

PATIENT
  Age: 74 Year
  Sex: Male
  Weight: 82 kg

DRUGS (12)
  1. CARBOPLATIN [Suspect]
     Indication: NON-SMALL CELL LUNG CANCER
     Dosage: THERAPY DATES: 07-JAN-2002 TO 11-MAR-2002 (CYCLE 4)
     Route: 042
     Dates: start: 20020107, end: 20020107
  2. GEMZAR [Suspect]
     Indication: NON-SMALL CELL LUNG CANCER
     Dosage: THERAPY DATES: 07-JAN-2002 TO 11-MAR-2002 (CYCLE 4)
     Route: 042
     Dates: start: 20020107, end: 20020107
  3. DECADRON [Concomitant]
  4. DILANTIN [Concomitant]
  5. SIMVASTATIN [Concomitant]
  6. ATENOLOL [Concomitant]
  7. LISINOPRIL [Concomitant]
  8. OXYCODONE [Concomitant]
  9. MEGACE [Concomitant]
  10. LASIX [Concomitant]
  11. COLCHICINE [Concomitant]
     Route: 048
  12. PRILOSEC [Concomitant]

REACTIONS (10)
  - ASTHENIA [None]
  - BLOOD POTASSIUM INCREASED [None]
  - CEREBRAL HAEMORRHAGE [None]
  - FALL [None]
  - FEELING ABNORMAL [None]
  - GAIT DISTURBANCE [None]
  - HAEMOGLOBIN DECREASED [None]
  - HEMIPARESIS [None]
  - PLATELET COUNT DECREASED [None]
  - WHITE BLOOD CELL COUNT DECREASED [None]
